FAERS Safety Report 8979999 (Version 1)
Quarter: 2012Q4

REPORT INFORMATION
  Report Type: Report from Study
  Country: GB (occurrence: GB)
  Receive Date: 20121221
  Receipt Date: 20121221
  Transmission Date: 20130627
  Serious: Yes (Hospitalization)
  Sender: FDA-Public Use
  Company Number: GB-ASTELLAS-2012EU010989

PATIENT
  Age: 43 Year
  Sex: Female
  Weight: 75.9 kg

DRUGS (38)
  1. TACROLIMUS SYSTEMIC [Suspect]
     Indication: PROPHYLAXIS AGAINST TRANSPLANT REJECTION
     Dosage: 3.5 mg, bid
     Route: 048
  2. DACLIZUMAB [Suspect]
     Indication: PROPHYLAXIS AGAINST TRANSPLANT REJECTION
     Dosage: 160 mg, Other
     Route: 042
     Dates: start: 20030524
  3. DACLIZUMAB [Suspect]
     Dosage: 80 mg, Other
     Route: 042
     Dates: start: 20030606, end: 20030719
  4. MYCOPHENOLATE MOFETIL [Suspect]
     Indication: PROPHYLAXIS AGAINST TRANSPLANT REJECTION
     Dosage: 250 mg, bid
     Route: 048
     Dates: start: 20030525
  5. MYCOPHENOLATE MOFETIL [Suspect]
     Dosage: 500 mg, bid
     Route: 048
     Dates: start: 20030820
  6. SIROLIMUS [Suspect]
     Indication: PROPHYLAXIS AGAINST TRANSPLANT REJECTION
     Dosage: 4 mg, UID/QD
     Route: 048
     Dates: start: 20030524, end: 20030703
  7. SIROLIMUS [Suspect]
     Dosage: 6 mg, UID/QD
     Route: 048
     Dates: start: 20030709, end: 20030722
  8. DOXAZOSIN [Suspect]
     Indication: PROPHYLAXIS AGAINST TRANSPLANT REJECTION
     Dosage: 4 mg, UID/QD
     Route: 048
     Dates: start: 20030607, end: 20030801
  9. PREDNISOLONE [Suspect]
     Indication: PROPHYLAXIS AGAINST TRANSPLANT REJECTION
     Dosage: 15 mg, UID/QD
     Route: 048
     Dates: start: 20030524, end: 20030703
  10. PREDNISOLONE [Suspect]
     Dosage: 5 mg, UID/QD
     Route: 048
     Dates: start: 20030709
  11. METHYLPREDNISOLONE [Suspect]
     Indication: PROPHYLAXIS AGAINST TRANSPLANT REJECTION
     Dosage: 500 mg, Other
     Route: 042
     Dates: start: 20030524
  12. METHYLPREDNISOLONE [Suspect]
     Dosage: 500 mg, UID/QD
     Route: 042
     Dates: start: 20030703, end: 20030706
  13. METHYLPREDNISOLONE [Suspect]
     Dosage: 500 mg, UID/QD
     Route: 042
     Dates: start: 20030715, end: 20030718
  14. ASPIRIN [Concomitant]
     Dosage: UNK
     Route: 048
  15. SIMVASTATIN [Concomitant]
     Dosage: UNK
     Route: 048
  16. COTRIMOXAZOLE [Concomitant]
     Dosage: 480 mg, UID/QD
     Route: 048
     Dates: start: 20030524
  17. GANCICLOVIR [Concomitant]
     Dosage: 500 mg, UID/QD
     Route: 048
     Dates: start: 20030529
  18. GANCICLOVIR [Concomitant]
     Dosage: 1.5 g, UID/QD
     Route: 048
     Dates: start: 20030602
  19. ATENOLOL [Concomitant]
     Dosage: 25 mg, UID/QD
     Route: 048
     Dates: start: 20030524, end: 20030811
  20. ATENOLOL [Concomitant]
     Dosage: 50 mg, UID/QD
     Route: 048
     Dates: start: 20030812
  21. ATENOLOL [Concomitant]
     Dosage: 25 mg, UID/QD
     Route: 048
     Dates: start: 20031208
  22. AUGMENTIN                          /00756801/ [Concomitant]
     Dosage: 1.2 g, UID/QD
     Route: 042
     Dates: start: 20030524, end: 20030530
  23. AUGMENTIN                          /00756801/ [Concomitant]
     Dosage: 625 mg, Other
     Route: 048
     Dates: start: 20030531, end: 20030605
  24. CALCICHEW [Concomitant]
     Dosage: 4 DF, Other
     Route: 048
     Dates: start: 20030617
  25. CALCICHEW [Concomitant]
     Dosage: 2 DF, UID/QD
     Route: 048
     Dates: start: 20030703, end: 20030709
  26. CIPROFLOXACIN [Concomitant]
     Dosage: 500 mg, bid
     Route: 049
     Dates: start: 20030602, end: 20030607
  27. CIPROFLOXACIN [Concomitant]
     Dosage: UNK
     Route: 048
     Dates: end: 20030924
  28. CIPROFLOXACIN [Concomitant]
     Dosage: UNK
  29. ENOXAPARIN SODIUM [Concomitant]
     Dosage: 20 mg, UID/QD
     Route: 058
     Dates: start: 20030529, end: 20030608
  30. DOPAMINE [Concomitant]
     Dosage: 240 mg, Other
     Route: 042
     Dates: start: 20030525
  31. FUROSEMIDE [Concomitant]
     Dosage: UNK
     Route: 045
     Dates: start: 20030525
  32. FUROSEMIDE [Concomitant]
     Dosage: 40 mg, Other
     Route: 042
     Dates: start: 20030526
  33. FUROSEMIDE [Concomitant]
     Dosage: 40 mg, UID/QD
     Route: 048
     Dates: start: 20030617
  34. LOSARTAN POTASSSIUM [Concomitant]
     Dosage: 50 mg, UID/QD
     Route: 048
     Dates: start: 20030707
  35. OMEPRAZOLE [Concomitant]
     Dosage: 20 mg, UID/QD
     Route: 048
     Dates: start: 20030525
  36. PARACETAMOL [Concomitant]
     Dosage: 1 g, qid
     Route: 048
     Dates: start: 20030525
  37. SLOW-K [Concomitant]
     Dosage: 1.2 g, tid
     Route: 048
     Dates: start: 20030530
  38. SPIRONOLACTONE [Concomitant]
     Dosage: 25 mg, bid
     Route: 048
     Dates: start: 20030630

REACTIONS (4)
  - Oedema [Recovered/Resolved]
  - Renal artery stenosis [Recovered/Resolved]
  - Hypertension [Recovered/Resolved]
  - Migraine [Recovered/Resolved]
